APPROVED DRUG PRODUCT: KEFTAB
Active Ingredient: CEPHALEXIN HYDROCHLORIDE
Strength: EQ 250MG BASE
Dosage Form/Route: TABLET;ORAL
Application: N050614 | Product #001
Applicant: ELI LILLY AND CO
Approved: Oct 29, 1987 | RLD: No | RS: No | Type: DISCN